FAERS Safety Report 11520094 (Version 1)
Quarter: 2015Q3

REPORT INFORMATION
  Report Type: Spontaneous
  Country: US (occurrence: None)
  Receive Date: 20150917
  Receipt Date: 20150917
  Transmission Date: 20151125
  Serious: Yes (Hospitalization, Disabling, Other)
  Sender: FDA-Public Use
  Company Number: None

PATIENT
  Age: 55 Year
  Sex: Female
  Weight: 77.11 kg

DRUGS (17)
  1. GABAPENTIN. [Concomitant]
     Active Substance: GABAPENTIN
  2. FLONASE [Concomitant]
     Active Substance: FLUTICASONE PROPIONATE
  3. FIBER POWDER [Concomitant]
  4. LISINOPRIL. [Concomitant]
     Active Substance: LISINOPRIL
  5. GLUCOSAMINE CHONDROITIN [Concomitant]
     Active Substance: CHONDROITIN SULFATE (BOVINE)\GLUCOSAMINE HYDROCHLORIDE
  6. KRILL OIL [Concomitant]
     Active Substance: DIETARY SUPPLEMENT
  7. PROBIOTICS [Concomitant]
     Active Substance: PROBIOTICS NOS
  8. KETOPRFN [Concomitant]
  9. FLORAJEN ACIDOPHILUS [Concomitant]
  10. OMEGA 3 [Concomitant]
     Active Substance: OMEGA-3 FATTY ACIDS
  11. TRAZODONE [Concomitant]
     Active Substance: TRAZODONE HYDROCHLORIDE
  12. ATORVASTATIN 10MG PFIZER [Suspect]
     Active Substance: ATORVASTATIN
     Indication: BLOOD CHOLESTEROL INCREASED
     Dosage: 1 PILL DAILY ONCE DAILY TAKEN BY MOUTH
     Route: 048
     Dates: start: 20150719, end: 20150816
  13. AMLODIPINE BESYLATE. [Concomitant]
     Active Substance: AMLODIPINE BESYLATE
  14. MAXALT [Concomitant]
     Active Substance: RIZATRIPTAN BENZOATE
  15. PENICILIN [Concomitant]
  16. COQ10 [Concomitant]
     Active Substance: UBIDECARENONE
  17. TRAMADOL. [Concomitant]
     Active Substance: TRAMADOL

REACTIONS (11)
  - Dizziness [None]
  - Fatigue [None]
  - Alanine aminotransferase increased [None]
  - Dysphagia [None]
  - Amnesia [None]
  - Hepatitis [None]
  - Abdominal pain lower [None]
  - Abdominal distension [None]
  - Constipation [None]
  - Cough [None]
  - Aspartate aminotransferase increased [None]

NARRATIVE: CASE EVENT DATE: 20150810
